FAERS Safety Report 14209997 (Version 1)
Quarter: 2017Q4

REPORT INFORMATION
  Report Type: Spontaneous
  Country: US (occurrence: US)
  Receive Date: 20171121
  Receipt Date: 20171121
  Transmission Date: 20180321
  Serious: Yes (Other)
  Sender: FDA-Public Use
  Company Number: None

PATIENT
  Age: 41 Year
  Sex: Male
  Weight: 83.25 kg

DRUGS (2)
  1. SYNTHROID [Concomitant]
     Active Substance: LEVOTHYROXINE SODIUM
  2. LEVAQUIN [Suspect]
     Active Substance: LEVOFLOXACIN
     Indication: PROSTATE INFECTION
     Route: 048

REACTIONS (7)
  - Arthropathy [None]
  - Arthralgia [None]
  - Loss of personal independence in daily activities [None]
  - Tendonitis [None]
  - Hypoaesthesia [None]
  - Tremor [None]
  - Tendon pain [None]

NARRATIVE: CASE EVENT DATE: 20171101
